FAERS Safety Report 10559478 (Version 2)
Quarter: 2015Q1

REPORT INFORMATION
  Report Type: Spontaneous
  Country: FR (occurrence: None)
  Receive Date: 20141030
  Receipt Date: 20150112
  Transmission Date: 20150720
  Serious: Yes (Death, Other)
  Sender: FDA-Public Use
  Company Number: 2014FR0454

PATIENT
  Age: 14 Year
  Sex: Female
  Weight: 31.8 kg

DRUGS (2)
  1. KINERET [Suspect]
     Active Substance: ANAKINRA
     Indication: JUVENILE IDIOPATHIC ARTHRITIS
     Dosage: 65 MG 1 IN 1 D
     Route: 058
     Dates: start: 20120830, end: 201311
  2. CORTICOSTEROIDS (CORTICOSTEROIDS) [Concomitant]

REACTIONS (6)
  - Pulmonary veno-occlusive disease [None]
  - Pulmonary arterial hypertension [None]
  - Lower respiratory tract infection [None]
  - Cardiac failure [None]
  - Cardio-respiratory arrest [None]
  - Spinal compression fracture [None]

NARRATIVE: CASE EVENT DATE: 201212
